FAERS Safety Report 8341616-X (Version None)
Quarter: 2012Q2

REPORT INFORMATION
  Report Type: 
  Country: None (occurrence: None)
  Receive Date: 20120507
  Receipt Date: 20120427
  Transmission Date: 20120825
  Serious: Yes (Other)
  Sender: FDA-Public Use
  Company Number: US-JNJFOC-20120414090

PATIENT
  Sex: Male
  Weight: 83.92 kg

DRUGS (4)
  1. ABILIFY [Concomitant]
     Indication: PSYCHOTIC DISORDER
     Route: 048
  2. HALDOL [Suspect]
     Indication: PSYCHOTIC DISORDER
     Route: 048
  3. BRETHINE [Concomitant]
     Indication: ASTHMA
     Dosage: AS NEEDED
     Route: 048
  4. LISINOPRIL [Concomitant]
     Indication: BLOOD PRESSURE
     Route: 048

REACTIONS (6)
  - EXTRAPYRAMIDAL DISORDER [None]
  - BRUXISM [None]
  - HEARING IMPAIRED [None]
  - ADVERSE DRUG REACTION [None]
  - TOOTH FRACTURE [None]
  - VISUAL IMPAIRMENT [None]
